FAERS Safety Report 17443553 (Version 4)
Quarter: 2022Q1

REPORT INFORMATION
  Report Type: Report from Study
  Country: US (occurrence: None)
  Receive Date: 20200221
  Receipt Date: 20220328
  Transmission Date: 20220423
  Serious: Yes (Life-Threatening, Hospitalization, Other)
  Sender: FDA-Public Use
  Company Number: US-ROCHE-2428878

PATIENT
  Age: 41 Year
  Sex: Female
  Weight: 85 kg

DRUGS (4)
  1. ATEZOLIZUMAB [Suspect]
     Active Substance: ATEZOLIZUMAB
     Indication: Invasive breast carcinoma
     Dosage: LAST DOSE WAS ADMINISTERED ON 09/SEP/2019?ON DAY 1 AND 22   ?CYCLE = 6 WEEKS (42 DAYS):ATEZOLIZUMAB
     Route: 042
     Dates: start: 20190909
  2. PACLITAXEL [Suspect]
     Active Substance: PACLITAXEL
     Indication: Invasive breast carcinoma
     Dosage: ON DAYS 1, 8, 15, 22, 29, AND 36?80 MG/M2?LAST DOSE (150 MG) WAS ADMINISTERED ON 09/SEP/2019?ON 23/S
     Route: 042
     Dates: start: 20190909
  3. TRASTUZUMAB [Suspect]
     Active Substance: TRASTUZUMAB
     Indication: Invasive breast carcinoma
     Dosage: ON DAYS 1 AND 22?8MG/KG IV C1D1 ONLY?679 MG?CYCLE = 6 WEEKS (42 DAYS): 6MG/KG IV ON DAYS 1 AND 22; 8
     Route: 042
     Dates: start: 20190909
  4. PERTUZUMAB [Suspect]
     Active Substance: PERTUZUMAB
     Indication: Invasive breast carcinoma
     Dosage: ON DAYS 1 AND 22?840MG IV C1D1 ONLY?CYCLE = 6 WEEKS (42 DAYS): 420 MG IV ON DAYS 1 AND 22; 840MG IV
     Route: 042
     Dates: start: 20190909

REACTIONS (5)
  - Pneumonia [Recovered/Resolved]
  - Anaemia [Recovered/Resolved]
  - Blood creatinine increased [Recovering/Resolving]
  - Neutrophil count decreased [Recovered/Resolved]
  - Hypocalcaemia [Unknown]

NARRATIVE: CASE EVENT DATE: 20190910
